FAERS Safety Report 24770610 (Version 1)
Quarter: 2024Q4

REPORT INFORMATION
  Report Type: Spontaneous
  Country: ES (occurrence: ES)
  Receive Date: 20241224
  Receipt Date: 20241224
  Transmission Date: 20250114
  Serious: Yes (Death, Hospitalization, Other)
  Sender: SANDOZ
  Company Number: ES-002147023-NVSC2021ES232307

PATIENT
  Age: 47 Year
  Sex: Female

DRUGS (9)
  1. BUSULFAN [Suspect]
     Active Substance: BUSULFAN
     Indication: Bone marrow conditioning regimen
     Dosage: UNK
     Route: 065
  2. BUSULFAN [Suspect]
     Active Substance: BUSULFAN
     Indication: Acute myeloid leukaemia
  3. DECITABINE [Suspect]
     Active Substance: DECITABINE
     Indication: Acute myeloid leukaemia
     Dosage: 20 MG/M2 ? DAYS 1-5 OF EACH28-DAY CYCLE
     Route: 065
  4. FLUDARABINE [Suspect]
     Active Substance: FLUDARABINE PHOSPHATE
     Indication: Acute myeloid leukaemia
     Dosage: UNK
     Route: 065
  5. FLUDARABINE [Suspect]
     Active Substance: FLUDARABINE PHOSPHATE
     Indication: Bone marrow conditioning regimen
  6. IMURAN [Suspect]
     Active Substance: AZATHIOPRINE
     Indication: Product used for unknown indication
     Dosage: 75 UNK
     Route: 065
  7. RAPAMYCIN [Suspect]
     Active Substance: SIROLIMUS
     Indication: Prophylaxis against graft versus host disease
     Dosage: UNK
     Route: 065
  8. TACROLIMUS [Suspect]
     Active Substance: TACROLIMUS
     Indication: Prophylaxis against graft versus host disease
     Dosage: UNK
     Route: 065
  9. VENETOCLAX [Suspect]
     Active Substance: VENETOCLAX
     Indication: Acute myeloid leukaemia
     Dosage: 100 MG DAILY TO A MAXIMUM DOSE OF 400 MG
     Route: 065

REACTIONS (14)
  - Septic shock [Fatal]
  - Pneumonia [Fatal]
  - Myelosuppression [Unknown]
  - Pneumonia klebsiella [Unknown]
  - Febrile neutropenia [Unknown]
  - Graft versus host disease in skin [Unknown]
  - Toxicity to various agents [Unknown]
  - Systemic candida [Unknown]
  - Escherichia bacteraemia [Unknown]
  - Splenic abscess [Unknown]
  - Bowel movement irregularity [Unknown]
  - Faeces pale [Unknown]
  - Drug interaction [Unknown]
  - Product use in unapproved indication [Unknown]
